FAERS Safety Report 24773489 (Version 1)
Quarter: 2024Q4

REPORT INFORMATION
  Report Type: Spontaneous
  Country: AU (occurrence: AU)
  Receive Date: 20241225
  Receipt Date: 20241225
  Transmission Date: 20250115
  Serious: Yes (Other)
  Sender: TEVA
  Company Number: AU-TEVA-VS-3277924

PATIENT
  Age: 70 Year
  Sex: Male

DRUGS (3)
  1. FENTANYL [Suspect]
     Active Substance: FENTANYL
     Indication: Product used for unknown indication
     Route: 065
  2. FLUMAZENIL [Suspect]
     Active Substance: FLUMAZENIL
     Indication: Product used for unknown indication
     Route: 065
  3. MIDAZOLAM [Suspect]
     Active Substance: MIDAZOLAM
     Indication: Product used for unknown indication
     Route: 065

REACTIONS (2)
  - Delirium [Unknown]
  - Agitation [Unknown]
